FAERS Safety Report 5274840-3 (Version None)
Quarter: 2007Q1

REPORT INFORMATION
  Report Type: 
  Country: None (occurrence: None)
  Receive Date: 20061208
  Receipt Date: 20051028
  Transmission Date: 20070707
  Serious: Yes (Disabling)
  Sender: FDA-Public Use
  Company Number: 2005UW16332

PATIENT
  Age: 60 Year
  Sex: Male

DRUGS (6)
  1. CRESTOR [Suspect]
  2. DOXEPIN HCL [Concomitant]
  3. NIASPAN [Concomitant]
  4. ZESTRIL [Concomitant]
  5. FLOMAX [Concomitant]
  6. COENZYME Q10 [Concomitant]

REACTIONS (2)
  - MUSCLE SPASMS [None]
  - MYALGIA [None]
